FAERS Safety Report 7550254-8 (Version None)
Quarter: 2011Q2

REPORT INFORMATION
  Report Type: 
  Country: None (occurrence: None)
  Receive Date: 20110615
  Receipt Date: 20110610
  Transmission Date: 20111010
  Serious: Yes (Hospitalization)
  Sender: FDA-Public Use
  Company Number: US-GILEAD-2011-0040315

PATIENT
  Age: 72 Year
  Sex: Female

DRUGS (2)
  1. REMODULIN [Concomitant]
  2. LETAIRIS [Suspect]
     Indication: PULMONARY HYPERTENSION
     Route: 048
     Dates: start: 20110423, end: 20110610

REACTIONS (1)
  - PULMONARY HYPERTENSION [None]
